FAERS Safety Report 18260390 (Version 1)
Quarter: 2020Q3

REPORT INFORMATION
  Report Type: Spontaneous
  Country: GB (occurrence: GB)
  Receive Date: 20200914
  Receipt Date: 20200914
  Transmission Date: 20201103
  Serious: Yes (Hospitalization, Other)
  Sender: FDA-Public Use
  Company Number: GB-SUN PHARMACEUTICAL INDUSTRIES LTD-2020RR-260595

PATIENT
  Age: 38 Year
  Sex: Female
  Weight: 44.45 kg

DRUGS (3)
  1. CIPROFLOXACIN. [Suspect]
     Active Substance: CIPROFLOXACIN
     Indication: CHOLECYSTITIS
     Dosage: 500 MILLIGRAM, UNK
     Route: 048
     Dates: start: 20200814, end: 20200820
  2. METRONIDAZOLE. [Suspect]
     Active Substance: METRONIDAZOLE
     Indication: CHOLECYSTITIS
     Dosage: 400 MILLIGRAM, UNK
     Route: 048
     Dates: start: 20200814, end: 20200820
  3. LEVOTHYROXINE SODIUM. [Concomitant]
     Active Substance: LEVOTHYROXINE SODIUM
     Indication: PRODUCT USED FOR UNKNOWN INDICATION
     Dosage: UNK
     Route: 065

REACTIONS (9)
  - Nausea [Unknown]
  - Paraesthesia [Unknown]
  - Hallucinations, mixed [Unknown]
  - Diarrhoea [Unknown]
  - Headache [Unknown]
  - Illness [Unknown]
  - Eructation [Unknown]
  - Burning sensation [Not Recovered/Not Resolved]
  - Head discomfort [Unknown]

NARRATIVE: CASE EVENT DATE: 20200814
